FAERS Safety Report 10187207 (Version 1)
Quarter: 2014Q2

REPORT INFORMATION
  Report Type: Spontaneous
  Country: US (occurrence: US)
  Receive Date: 20140522
  Receipt Date: 20140522
  Transmission Date: 20141212
  Serious: No
  Sender: FDA-Public Use
  Company Number: US-009507513-1405USA010094

PATIENT
  Age: 26 Year
  Sex: Female
  Weight: 74.83 kg

DRUGS (3)
  1. NUVARING [Suspect]
     Indication: CONTRACEPTION
     Dosage: UNK
     Dates: start: 2012
  2. NUVARING [Suspect]
     Indication: MUSCLE SPASMS
  3. RESTASIS [Concomitant]

REACTIONS (2)
  - Metrorrhagia [Unknown]
  - Off label use [Unknown]
